FAERS Safety Report 4627463-0 (Version None)
Quarter: 2005Q1

REPORT INFORMATION
  Report Type: 
  Country: None (occurrence: None)
  Receive Date: 20050331
  Receipt Date: 20050317
  Transmission Date: 20050727
  Serious: Yes (Hospitalization)
  Sender: FDA-Public Use
  Company Number: 106218ISR

PATIENT
  Age: 70 Year
  Sex: Female

DRUGS (3)
  1. DOXORUBICIN HCL [Suspect]
     Dosage: 33 MILLIGRAM; INTRAVENOUS (NOS)
     Route: 042
     Dates: start: 20050124, end: 20050126
  2. IFOSFAMIDE [Suspect]
     Dosage: 4200 MILLIGRAM; INTRAVENOUS (NOS)
     Route: 042
     Dates: start: 20050124, end: 20050126
  3. MESNA [Suspect]
     Dosage: 4150 MILLIGRAM; INTRAVENOUS (NOS)
     Route: 042
     Dates: start: 20050124, end: 20050126

REACTIONS (6)
  - APHASIA [None]
  - CONFUSIONAL STATE [None]
  - DISTURBANCE IN ATTENTION [None]
  - ENCEPHALOPATHY [None]
  - HYPERCREATININAEMIA [None]
  - SOMNOLENCE [None]
